FAERS Safety Report 14218118 (Version 1)
Quarter: 2017Q4

REPORT INFORMATION
  Report Type: Spontaneous
  Country: US (occurrence: US)
  Receive Date: 20171123
  Receipt Date: 20171123
  Transmission Date: 20180321
  Serious: No
  Sender: FDA-Public Use
  Company Number: US-ELI_LILLY_AND_COMPANY-US201711008073

PATIENT
  Sex: Female

DRUGS (1)
  1. BASAGLAR [Suspect]
     Active Substance: INSULIN GLARGINE
     Indication: PRODUCT USED FOR UNKNOWN INDICATION
     Dosage: 14 U, UNKNOWN
     Route: 065
     Dates: start: 201710

REACTIONS (4)
  - Underdose [Unknown]
  - Injection site bruising [Unknown]
  - Drug ineffective [Unknown]
  - Injection site pain [Unknown]
